FAERS Safety Report 14750873 (Version 1)
Quarter: 2018Q2

REPORT INFORMATION
  Report Type: Spontaneous
  Country: US (occurrence: US)
  Receive Date: 20180412
  Receipt Date: 20180412
  Transmission Date: 20180711
  Serious: Yes (Other)
  Sender: FDA-Public Use
  Company Number: US-ROCHE-2103980

PATIENT
  Age: 42 Year
  Sex: Female
  Weight: 69.92 kg

DRUGS (4)
  1. CATHFLO ACTIVASE [Suspect]
     Active Substance: ALTEPLASE
     Dosage: 2MG IV MIXED WITH 2.2ML OF STERILE WATER
     Route: 042
     Dates: start: 20180404
  2. DOXYCYCLINE. [Concomitant]
     Active Substance: DOXYCYCLINE
     Dosage: 200MG BID THROUGH PICC LINE ;ONGOING: YES
     Route: 065
     Dates: start: 201803
  3. PREDNISONE. [Concomitant]
     Active Substance: PREDNISONE
     Dosage: TAPERED DOSE ;ONGOING: YES
     Route: 065
  4. CATHFLO ACTIVASE [Suspect]
     Active Substance: ALTEPLASE
     Indication: DEVICE OCCLUSION
     Route: 042

REACTIONS (7)
  - Rash [Unknown]
  - Autoimmune disorder [Unknown]
  - Abnormal sensation in eye [Unknown]
  - Ecchymosis [Unknown]
  - Pain [Unknown]
  - Lyme disease [Unknown]
  - Anxiety [Unknown]

NARRATIVE: CASE EVENT DATE: 20180404
